FAERS Safety Report 8157843-0 (Version None)
Quarter: 2012Q1

REPORT INFORMATION
  Report Type: 
  Country: None (occurrence: None)
  Receive Date: 20120222
  Receipt Date: 20120215
  Transmission Date: 20120608
  Serious: Yes (Death, Hospitalization, Other)
  Sender: FDA-Public Use
  Company Number: FR-PFIZER INC-2009315330

PATIENT
  Age: 58 Year
  Sex: Female

DRUGS (6)
  1. LEVOLEUCOVORIN CALCIUM [Suspect]
     Indication: COLORECTAL CANCER METASTATIC
     Dosage: 330 MG, CYCLIC
     Route: 042
     Dates: start: 20090401, end: 20091009
  2. ZOFRAN [Suspect]
     Indication: PREMEDICATION
     Dosage: SINGLE
     Route: 042
     Dates: start: 20091009, end: 20091009
  3. FLUOROURACIL [Concomitant]
     Dosage: 1980 MG, CYCLIC
     Route: 041
     Dates: start: 20090401, end: 20091009
  4. SOLU-MEDROL [Suspect]
     Indication: PREMEDICATION
     Dosage: SINGLE
     Route: 042
     Dates: start: 20091009, end: 20091009
  5. FLUOROURACIL [Concomitant]
     Indication: COLORECTAL CANCER METASTATIC
     Dosage: 660 MG, CYCLIC
     Route: 040
     Dates: start: 20090401, end: 20091009
  6. OXALIPLATIN [Suspect]
     Indication: COLORECTAL CANCER METASTATIC
     Dosage: 105 MG, CYCLIC
     Route: 042
     Dates: start: 20090401, end: 20091009

REACTIONS (20)
  - HYPOTHERMIA [None]
  - DISSEMINATED INTRAVASCULAR COAGULATION [None]
  - METABOLIC ACIDOSIS [None]
  - CARDIAC ARREST [None]
  - VOMITING [None]
  - MULTI-ORGAN FAILURE [None]
  - HYPOALBUMINAEMIA [None]
  - LEFT VENTRICULAR DYSFUNCTION [None]
  - INCONTINENCE [None]
  - RESPIRATORY FAILURE [None]
  - ANURIA [None]
  - AGITATION [None]
  - COOMBS POSITIVE HAEMOLYTIC ANAEMIA [None]
  - CARDIOGENIC SHOCK [None]
  - DISORIENTATION [None]
  - LACTIC ACIDOSIS [None]
  - ACUTE PULMONARY OEDEMA [None]
  - BACK PAIN [None]
  - RESPIRATORY DISTRESS [None]
  - SHOCK [None]
